FAERS Safety Report 22400774 (Version 1)
Quarter: 2023Q2

REPORT INFORMATION
  Report Type: Report from Study
  Country: BR (occurrence: BR)
  Receive Date: 20230602
  Receipt Date: 20230602
  Transmission Date: 20230721
  Serious: Yes (Other)
  Sender: FDA-Public Use
  Company Number: BR-BIOGEN-2023BI01208139

PATIENT
  Sex: Male
  Weight: 69 kg

DRUGS (1)
  1. TYSABRI [Suspect]
     Active Substance: NATALIZUMAB
     Indication: Multiple sclerosis
     Route: 050
     Dates: start: 2022

REACTIONS (15)
  - Multiple sclerosis relapse [Unknown]
  - Fall [Recovered/Resolved]
  - Contusion [Unknown]
  - Scratch [Recovered/Resolved]
  - Skin swelling [Unknown]
  - Depressed mood [Unknown]
  - Depression [Unknown]
  - Underweight [Unknown]
  - Hunger [Unknown]
  - Tongue biting [Unknown]
  - Drug intolerance [Unknown]
  - Optic neuritis [Unknown]
  - Drug ineffective [Unknown]
  - Pyrexia [Unknown]
  - Multiple sclerosis [Not Recovered/Not Resolved]
